FAERS Safety Report 8302218-4 (Version None)
Quarter: 2012Q2

REPORT INFORMATION
  Report Type: 
  Country: None (occurrence: None)
  Receive Date: 20120420
  Receipt Date: 20120416
  Transmission Date: 20120825
  Serious: No
  Sender: FDA-Public Use
  Company Number: US-BAYER-2012-038358

PATIENT
  Sex: Female

DRUGS (1)
  1. CIPROFLOXACIN HCL [Suspect]
     Indication: KIDNEY INFECTION

REACTIONS (5)
  - ARTHRALGIA [None]
  - MOBILITY DECREASED [None]
  - LIP SWELLING [None]
  - SWELLING FACE [None]
  - GAIT DISTURBANCE [None]
